FAERS Safety Report 21167576 (Version 1)
Quarter: 2022Q3

REPORT INFORMATION
  Report Type: Spontaneous
  Country: US (occurrence: None)
  Receive Date: 20220803
  Receipt Date: 20220803
  Transmission Date: 20221027
  Serious: No
  Sender: FDA-Public Use
  Company Number: None

PATIENT
  Age: 75 Year
  Sex: Female
  Weight: 60.33 kg

DRUGS (8)
  1. EMGALITY [Suspect]
     Active Substance: GALCANEZUMAB-GNLM
     Indication: Migraine
     Dosage: FREQUENCY : ONCE;?OTHER ROUTE : INJECTION IN STOMACH;?
     Route: 050
     Dates: start: 20220413
  2. RESTASIS [Concomitant]
     Active Substance: CYCLOSPORINE
  3. ATORVASTATIN [Concomitant]
     Active Substance: ATORVASTATIN
  4. LORAZEPAM [Concomitant]
     Active Substance: LORAZEPAM
  5. LUCENTIS [Concomitant]
     Active Substance: RANIBIZUMAB
  6. MINERALS\VITAMINS [Concomitant]
     Active Substance: MINERALS\VITAMINS
  7. FISH OIL [Concomitant]
     Active Substance: FISH OIL
  8. COENZYME Q10 [Concomitant]
     Active Substance: DIETARY SUPPLEMENT\UBIDECARENONE

REACTIONS (3)
  - Dizziness [None]
  - Sensation of foreign body [None]
  - Dysphagia [None]

NARRATIVE: CASE EVENT DATE: 20220414
